FAERS Safety Report 12433918 (Version 3)
Quarter: 2017Q4

REPORT INFORMATION
  Report Type: Spontaneous
  Country: US (occurrence: US)
  Receive Date: 20160603
  Receipt Date: 20171011
  Transmission Date: 20180320
  Serious: Yes (Hospitalization, Other)
  Sender: FDA-Public Use
  Company Number: US-DSJP-DSU-2015-121269

PATIENT

DRUGS (2)
  1. LOSARTAN. [Concomitant]
     Active Substance: LOSARTAN
     Indication: PRODUCT USED FOR UNKNOWN INDICATION
     Dosage: UNK
  2. BENICAR [Suspect]
     Active Substance: OLMESARTAN MEDOXOMIL
     Indication: HYPERTENSION
     Dosage: 40 MG, QD
     Dates: start: 201101, end: 2012

REACTIONS (8)
  - Hiatus hernia [Unknown]
  - Microcytic anaemia [Not Recovered/Not Resolved]
  - Pancreatitis acute [Recovered/Resolved]
  - Haemorrhoids [Unknown]
  - Malabsorption [Not Recovered/Not Resolved]
  - Helicobacter infection [Unknown]
  - Acute kidney injury [Recovered/Resolved]
  - Hepatic enzyme increased [Unknown]

NARRATIVE: CASE EVENT DATE: 2012
